FAERS Safety Report 8030389-6 (Version None)
Quarter: 2012Q1

REPORT INFORMATION
  Report Type: 
  Country: None (occurrence: None)
  Receive Date: 20120109
  Receipt Date: 20120109
  Transmission Date: 20120608
  Serious: Yes (Other)
  Sender: FDA-Public Use
  Company Number: None

PATIENT
  Age: 37 Year
  Sex: Male
  Weight: 90.718 kg

DRUGS (1)
  1. ENTOCORT EC [Suspect]
     Indication: COLITIS ULCERATIVE
     Dosage: 9MG
     Route: 048
     Dates: start: 20111218, end: 20120106

REACTIONS (4)
  - POOR QUALITY SLEEP [None]
  - FATIGUE [None]
  - INCREASED APPETITE [None]
  - IRRITABILITY [None]
